FAERS Safety Report 12717967 (Version 1)
Quarter: 2016Q3

REPORT INFORMATION
  Report Type: Spontaneous
  Country: US (occurrence: US)
  Receive Date: 20160906
  Receipt Date: 20160906
  Transmission Date: 20161109
  Serious: Yes (Death, Hospitalization)
  Sender: FDA-Public Use
  Company Number: US-VALIDUS PHARMACEUTICALS LLC-US-2016VAL002531

PATIENT

DRUGS (20)
  1. ATROVENT [Suspect]
     Active Substance: IPRATROPIUM BROMIDE
     Indication: PRODUCT USED FOR UNKNOWN INDICATION
     Dosage: UNK
  2. RANITIDINE. [Suspect]
     Active Substance: RANITIDINE
     Indication: PRODUCT USED FOR UNKNOWN INDICATION
     Dosage: UNK
     Dates: start: 199704
  3. LASIX [Suspect]
     Active Substance: FUROSEMIDE
     Indication: PRODUCT USED FOR UNKNOWN INDICATION
     Dosage: UNK
     Dates: start: 199704
  4. ALBUTEROL                          /00139501/ [Suspect]
     Active Substance: ALBUTEROL
     Dosage: UNK, CONTINUOUS USE AT HOSPITAL
     Dates: end: 1997
  5. DIAMOX                             /00016901/ [Suspect]
     Active Substance: ACETAZOLAMIDE
     Indication: PYREXIA
     Dosage: UNK
  6. SOLU-MEDROL [Suspect]
     Active Substance: METHYLPREDNISOLONE SODIUM SUCCINATE
     Indication: ASTHMA
     Dosage: UNK
     Dates: start: 19970402
  7. DOBUTAMINE [Suspect]
     Active Substance: DOBUTAMINE\DOBUTAMINE HYDROCHLORIDE
     Indication: PRODUCT USED FOR UNKNOWN INDICATION
     Dosage: UNK
     Dates: start: 199704
  8. PREDNISONE. [Suspect]
     Active Substance: PREDNISONE
     Indication: PRODUCT USED FOR UNKNOWN INDICATION
     Dosage: UNK
  9. FENTANYL. [Suspect]
     Active Substance: FENTANYL
     Indication: PRODUCT USED FOR UNKNOWN INDICATION
     Dosage: UNK
     Dates: start: 1997
  10. CEFTAZIDIME. [Suspect]
     Active Substance: CEFTAZIDIME
     Indication: SINUSITIS
     Dosage: UNK
     Dates: start: 199704
  11. ALBUTEROL                          /00139501/ [Suspect]
     Active Substance: ALBUTEROL
     Indication: ASTHMA
     Dosage: UNK, 20-50
     Dates: start: 199609, end: 1997
  12. PROVENTIL [Suspect]
     Active Substance: ALBUTEROL
     Indication: ASTHMA
     Dosage: UNK
     Dates: start: 1989
  13. TERBUTALINE [Suspect]
     Active Substance: TERBUTALINE
     Indication: PRODUCT USED FOR UNKNOWN INDICATION
     Dosage: 1 MCG/L{G/MIN
     Dates: start: 199704
  14. IBUPROFEN. [Suspect]
     Active Substance: IBUPROFEN
     Indication: PYREXIA
     Dosage: UNK
     Dates: start: 199704
  15. EPINEPHRINE. [Suspect]
     Active Substance: EPINEPHRINE
     Indication: PRODUCT USED FOR UNKNOWN INDICATION
     Dosage: UNK
     Dates: start: 199704
  16. NASACORT [Suspect]
     Active Substance: TRIAMCINOLONE ACETONIDE
     Indication: PRODUCT USED FOR UNKNOWN INDICATION
     Dosage: UNK
  17. DOPAMINE [Suspect]
     Active Substance: DOPAMINE\DOPAMINE HYDROCHLORIDE
     Indication: PRODUCT USED FOR UNKNOWN INDICATION
     Dosage: 20MCG/KG/MIN
     Dates: start: 199704
  18. AZMACORT [Suspect]
     Active Substance: TRIAMCINOLONE ACETONIDE
     Indication: ASTHMA
     Dosage: UNK
  19. OXACILLIN [Suspect]
     Active Substance: OXACILLIN SODIUM
     Indication: SINUSITIS
     Dosage: UNK
     Dates: start: 199704
  20. SUCRALFATE. [Suspect]
     Active Substance: SUCRALFATE
     Indication: PRODUCT USED FOR UNKNOWN INDICATION
     Dosage: UNK
     Dates: start: 199704

REACTIONS (27)
  - Multiple organ dysfunction syndrome [Fatal]
  - Coagulopathy [Fatal]
  - Acute kidney injury [Fatal]
  - Hypotension [Fatal]
  - Gastrointestinal necrosis [Fatal]
  - Cardiogenic shock [Fatal]
  - Hepatic steatosis [Fatal]
  - Pulmonary haemorrhage [Fatal]
  - Pleural effusion [Fatal]
  - Septic shock [Fatal]
  - Hyperkalaemia [Fatal]
  - Pulmonary oedema [Fatal]
  - Visceral congestion [Fatal]
  - Lactic acidosis [Fatal]
  - Systemic inflammatory response syndrome [Fatal]
  - Status asthmaticus [Fatal]
  - Gastrointestinal haemorrhage [Fatal]
  - Peritoneal haemorrhage [Fatal]
  - Retroperitoneal haemorrhage [Fatal]
  - Hepatic failure [Fatal]
  - Hepatic necrosis [Fatal]
  - Renal tubular necrosis [Fatal]
  - Ventricular tachycardia [Fatal]
  - Colon gangrene [Fatal]
  - Bronchial hyperreactivity [Fatal]
  - Venous thrombosis [Fatal]
  - Soft tissue swelling [Fatal]

NARRATIVE: CASE EVENT DATE: 199704
